FAERS Safety Report 8080737-6 (Version None)
Quarter: 2012Q1

REPORT INFORMATION
  Report Type: 
  Country: None (occurrence: None)
  Receive Date: 20120130
  Receipt Date: 20120124
  Transmission Date: 20120608
  Serious: Yes (Death)
  Sender: FDA-Public Use
  Company Number: PHHY2011JP109006

PATIENT
  Sex: Male
  Weight: 75 kg

DRUGS (21)
  1. VALSARTAN [Suspect]
     Indication: HYPERTENSION
     Dosage: 80 MG, QD
     Route: 048
     Dates: start: 20071017, end: 20080107
  2. ESTAZOLAM [Concomitant]
     Dosage: 2 MG, UNK
     Route: 048
     Dates: start: 20080620
  3. OMEPRAZOLE [Concomitant]
     Dosage: 20 MG, UNK
     Route: 048
     Dates: start: 20070409
  4. LOXONIN [Concomitant]
     Route: 048
     Dates: start: 20081006, end: 20081031
  5. VALSARTAN [Suspect]
     Dosage: 80 MG, QD
     Route: 048
     Dates: start: 20080425, end: 20090220
  6. TEXMETEN [Concomitant]
     Route: 062
     Dates: start: 20070801, end: 20070917
  7. ASPIRIN [Concomitant]
     Dosage: 100 MG, UNK
     Route: 048
     Dates: start: 20020830
  8. VESICARE [Concomitant]
     Dosage: 5 MG, UNK
     Route: 048
     Dates: start: 20081226
  9. LIDOMEX [Concomitant]
     Route: 062
     Dates: start: 20090123
  10. VALSARTAN [Suspect]
     Dosage: 160 MG, QD
     Route: 048
     Dates: start: 20080108, end: 20080424
  11. ADALAT [Concomitant]
     Indication: HYPERTENSION
     Dosage: 20 MG, UNK
     Route: 048
     Dates: start: 20080425
  12. HALCION [Concomitant]
     Dosage: 0.25 MG, UNK
     Route: 048
     Dates: start: 19920116
  13. KERATINAMIN [Concomitant]
     Route: 062
     Dates: start: 20090123
  14. MICARDIS [Concomitant]
     Indication: HYPERTENSION
     Dosage: 40 MG, UNK
     Route: 048
     Dates: start: 20070110, end: 20071016
  15. DORAL [Concomitant]
     Dosage: 15 MG, UNK
     Route: 048
     Dates: start: 20051109, end: 20080522
  16. RIZE [Concomitant]
     Dosage: 10 MG, UNK
     Route: 048
     Dates: start: 20070703
  17. PL [Concomitant]
     Dosage: 4 G, UNK
     Route: 048
     Dates: start: 20071112, end: 20071117
  18. MAGNESIUM HYDROXIDE TAB [Concomitant]
     Dosage: 3.6 G, UNK
     Route: 048
     Dates: start: 20080425, end: 20080821
  19. AMARYL [Concomitant]
     Dosage: 2 MG, UNK
     Route: 048
     Dates: start: 20060404
  20. ZOLPIDEM [Concomitant]
     Dosage: 5 MG, UNK
     Route: 048
     Dates: start: 20080523, end: 20080619
  21. SANCOBA [Concomitant]
     Route: 048
     Dates: start: 20070703, end: 20070917

REACTIONS (5)
  - HYPERKERATOSIS [None]
  - COMPLETED SUICIDE [None]
  - HEADACHE [None]
  - HYPERTONIC BLADDER [None]
  - NASOPHARYNGITIS [None]
